FAERS Safety Report 25214909 (Version 1)
Quarter: 2025Q2

REPORT INFORMATION
  Report Type: Spontaneous
  Country: ES (occurrence: ES)
  Receive Date: 20250418
  Receipt Date: 20250418
  Transmission Date: 20250716
  Serious: Yes (Other)
  Sender: Harrow Health
  Company Number: ES-HARROW-HAR-2025-ES-00105

PATIENT
  Age: 14 Year
  Sex: Male

DRUGS (7)
  1. MAXIDEX [Suspect]
     Active Substance: DEXAMETHASONE
     Indication: Vernal keratoconjunctivitis
     Route: 065
  2. OMALIZUMAB [Suspect]
     Active Substance: OMALIZUMAB
     Indication: Vernal keratoconjunctivitis
     Route: 058
  3. DEXAMETHASONE\TOBRAMYCIN [Suspect]
     Active Substance: DEXAMETHASONE\TOBRAMYCIN
     Indication: Vernal keratoconjunctivitis
     Route: 065
  4. CYCLOSPORINE [Concomitant]
     Active Substance: CYCLOSPORINE
  5. TACROLIMUS [Concomitant]
     Active Substance: TACROLIMUS
  6. CETIRIZINE [Concomitant]
     Active Substance: CETIRIZINE HYDROCHLORIDE
  7. FLUORESCEIN [Concomitant]
     Active Substance: FLUORESCEIN

REACTIONS (6)
  - Corneal leukoma [Unknown]
  - Vernal keratoconjunctivitis [Recovering/Resolving]
  - Blood immunoglobulin E increased [Recovering/Resolving]
  - Therapeutic product effect incomplete [Unknown]
  - Drug ineffective [Unknown]
  - Off label use [Unknown]
